FAERS Safety Report 8855017 (Version 1)
Quarter: 2012Q4

REPORT INFORMATION
  Report Type: 
  Country: BR (occurrence: BR)
  Receive Date: 20121023
  Receipt Date: 20121023
  Transmission Date: 20130627
  Serious: Yes (Other)
  Sender: FDA-Public Use
  Company Number: PHHY2012BR093694

PATIENT
  Age: 61 Year
  Sex: Female

DRUGS (3)
  1. ZOLEDRONIC ACID [Suspect]
     Indication: OSTEITIS DEFORMANS
     Dosage: 4 mg, UNK
  2. ERGOCALCIFEROL [Concomitant]
     Dosage: 6000000 IU, single dose
     Route: 048
  3. CALCIUM [Concomitant]
     Dosage: 1.5 g, daily
     Route: 048

REACTIONS (9)
  - Intracranial pressure increased [Recovered/Resolved]
  - Confusional state [Recovered/Resolved]
  - Disorientation [Recovered/Resolved]
  - Agitation [Recovered/Resolved]
  - Urinary incontinence [Not Recovered/Not Resolved]
  - Influenza like illness [Unknown]
  - Pyrexia [Unknown]
  - Hypotension [Unknown]
  - Hypocalcaemia [Unknown]
